FAERS Safety Report 19255579 (Version 1)
Quarter: 2021Q2

REPORT INFORMATION
  Report Type: Spontaneous
  Country: DE (occurrence: DE)
  Receive Date: 20210514
  Receipt Date: 20210514
  Transmission Date: 20210717
  Serious: Yes (Other)
  Sender: FDA-Public Use
  Company Number: DE-AUROBINDO-AUR-APL-2021-019403

PATIENT
  Age: 55 Year
  Sex: Female
  Weight: 68 kg

DRUGS (19)
  1. AKYNZEO [Concomitant]
     Active Substance: NETUPITANT\PALONOSETRON HYDROCHLORIDE
     Indication: VOMITING
     Dosage: 1 UNK (PER CYCLE)
     Route: 048
     Dates: start: 20200526
  2. DOXYCYCLIN?RATIOPHARM [Concomitant]
     Indication: RASH
     Dosage: 200 MILLIGRAM, ONCE A DAY (100 MILLIGRAM, BID)
     Route: 048
     Dates: start: 20200526, end: 20200624
  3. NOVAMINSULFON?RATIOPHARM [Concomitant]
     Active Substance: METAMIZOLE
     Indication: PAIN
     Dosage: 1 GRAM, FOUR TIMES/DAY
     Route: 048
     Dates: start: 20210104
  4. DEXAMETHASON [Concomitant]
     Active Substance: DEXAMETHASONE
     Indication: VOMITING
     Dosage: 4 MILLIGRAM (PER CYCLE)
     Route: 042
     Dates: start: 20200428
  5. MORPHINE SULFATE. [Concomitant]
     Active Substance: MORPHINE SULFATE
     Indication: PAIN
     Dosage: 80 MILLIGRAM, ONCE A DAY (40 MILLIGRAM, BID)
     Route: 048
     Dates: start: 20210104
  6. IRINOTECAN [Suspect]
     Active Substance: IRINOTECAN
     Indication: COLORECTAL CANCER METASTATIC
     Dosage: 320 MILLIGRAM
     Route: 065
     Dates: start: 20200526
  7. FLUOROURACIL. [Suspect]
     Active Substance: FLUOROURACIL
     Indication: COLORECTAL CANCER METASTATIC
     Dosage: 720 MILLIGRAM
     Route: 040
     Dates: start: 20200512
  8. VECTIBIX [Suspect]
     Active Substance: PANITUMUMAB
     Indication: COLORECTAL CANCER METASTATIC
     Dosage: 410 MILLIGRAM
     Route: 042
     Dates: start: 20200526
  9. GRANISETRON [Concomitant]
     Active Substance: GRANISETRON
     Indication: VOMITING
     Dosage: 4 MILLIGRAM (PER CYCLE )
     Route: 042
     Dates: start: 20200428
  10. TILIDIN [Concomitant]
     Active Substance: NALOXONE HYDROCHLORIDE\TILIDINE HYDROCHLORIDE
     Indication: PAIN
     Dosage: 20 UNK, 3 TIMES A DAY
     Route: 048
     Dates: start: 20201207
  11. FLUOROURACIL. [Suspect]
     Active Substance: FLUOROURACIL
     Dosage: 715 MILLIGRAM
     Route: 040
     Dates: start: 20200526
  12. VOMEX A [Concomitant]
     Active Substance: DIMENHYDRINATE
     Indication: VOMITING
     Dosage: 1 UNK PRN AS NEEDED
     Route: 042
     Dates: start: 20200526, end: 20200526
  13. FOLINIC ACID [Suspect]
     Active Substance: LEUCOVORIN
     Dosage: 720 MILLIGRAM
     Route: 065
     Dates: start: 20200512
  14. FLUOROURACIL. [Suspect]
     Active Substance: FLUOROURACIL
     Dosage: 4300 MILLIGRAM
     Route: 042
     Dates: start: 20200512
  15. FOLINIC ACID [Suspect]
     Active Substance: LEUCOVORIN
     Indication: COLORECTAL CANCER METASTATIC
     Dosage: 715 MILLIGRAM
     Route: 065
     Dates: start: 20200526
  16. IRINOTECAN [Suspect]
     Active Substance: IRINOTECAN
     Dosage: 350 MILLIGRAM
     Route: 065
     Dates: start: 20200512
  17. FOLINIC ACID [Suspect]
     Active Substance: LEUCOVORIN
     Dosage: 720 MILLIGRAM
     Route: 065
     Dates: start: 20200610
  18. FLUOROURACIL. [Suspect]
     Active Substance: FLUOROURACIL
     Dosage: 720 MILLIGRAM
     Route: 040
     Dates: start: 20200610
  19. MCP?RATIOPHARM [Concomitant]
     Active Substance: METOCLOPRAMIDE HYDROCHLORIDE
     Indication: VOMITING
     Dosage: 300 MILLIGRAM, ONCE A DAY (100 MILLIGRAM, TID)
     Route: 048
     Dates: start: 20201023

REACTIONS (1)
  - Portal vein thrombosis [Unknown]

NARRATIVE: CASE EVENT DATE: 20210413
